FAERS Safety Report 5792397-5 (Version None)
Quarter: 2008Q2

REPORT INFORMATION
  Report Type: 
  Country: None (occurrence: None)
  Receive Date: 20080626
  Receipt Date: 20080421
  Transmission Date: 20081010
  Serious: No
  Sender: FDA-Public Use
  Company Number: US-ASTRAZENECA-2008UW08076

PATIENT
  Age: 3 Year
  Sex: Female

DRUGS (1)
  1. PULMICORT RESPULES [Suspect]
     Dosage: 0.5 MG/DL QD
     Route: 055
     Dates: start: 20071001

REACTIONS (2)
  - ABNORMAL BEHAVIOUR [None]
  - PAIN IN EXTREMITY [None]
